FAERS Safety Report 5842036-X (Version None)
Quarter: 2008Q3

REPORT INFORMATION
  Report Type: 
  Country: None (occurrence: None)
  Receive Date: 20080731
  Receipt Date: 20080513
  Transmission Date: 20090109
  Serious: No
  Sender: FDA-Public Use
  Company Number: US200805003085

PATIENT
  Age: 68 Year
  Sex: Female

DRUGS (7)
  1. BYETTA [Suspect]
     Indication: TYPE 2 DIABETES MELLITUS
     Dosage: 5 UG, 2/D, SUBCUTANEOUS; 5 UG, EACH MORNING, SUBCUTANEOUS; 10 UG, EACH EVENING, SUBCUTANEOUS
     Route: 058
     Dates: start: 20080401, end: 20080511
  2. BYETTA [Suspect]
     Indication: TYPE 2 DIABETES MELLITUS
     Dosage: 5 UG, 2/D, SUBCUTANEOUS; 5 UG, EACH MORNING, SUBCUTANEOUS; 10 UG, EACH EVENING, SUBCUTANEOUS
     Route: 058
     Dates: start: 20080512
  3. BYETTA [Suspect]
     Indication: TYPE 2 DIABETES MELLITUS
     Dosage: 5 UG, 2/D, SUBCUTANEOUS; 5 UG, EACH MORNING, SUBCUTANEOUS; 10 UG, EACH EVENING, SUBCUTANEOUS
     Route: 058
     Dates: start: 20080512
  4. MICRONASE [Concomitant]
  5. GLUCOPHAGE /USA/ (METFORMIN HYDROCHLORIDE) [Concomitant]
  6. ANTIHYPERTENSIVES [Concomitant]
  7. CHOLESTEROL-AND TRIGLYCERIDE REDUCERS [Concomitant]

REACTIONS (2)
  - BLOOD GLUCOSE INCREASED [None]
  - NAUSEA [None]
